FAERS Safety Report 22790395 (Version 4)
Quarter: 2023Q4

REPORT INFORMATION
  Report Type: Spontaneous
  Country: CA (occurrence: CA)
  Receive Date: 20230805
  Receipt Date: 20231030
  Transmission Date: 20240109
  Serious: Yes (Other)
  Sender: FDA-Public Use
  Company Number: CA-CELLTRION INC.-2023CA015455

PATIENT

DRUGS (2)
  1. INFLECTRA [Suspect]
     Active Substance: INFLIXIMAB-DYYB
     Indication: Crohn^s disease
     Dosage: 500 MG, AT WEEK 0, 2 AND 6 THEN Q 8 WEEKS
     Route: 042
     Dates: start: 20230711
  2. AZATHIOPRINE [Concomitant]
     Active Substance: AZATHIOPRINE
     Dosage: 100 MG, DAILY

REACTIONS (9)
  - Nephrolithiasis [Unknown]
  - Sleep apnoea syndrome [Unknown]
  - Wound complication [Recovered/Resolved]
  - Fatigue [Recovering/Resolving]
  - Impaired healing [Unknown]
  - Cough [Unknown]
  - Weight increased [Unknown]
  - Abdominal hernia [Unknown]
  - Stomal hernia [Unknown]

NARRATIVE: CASE EVENT DATE: 20230101
